FAERS Safety Report 5218537-4 (Version None)
Quarter: 2007Q1

REPORT INFORMATION
  Report Type: 
  Country: None (occurrence: None)
  Receive Date: 20061130
  Receipt Date: 20060714
  Transmission Date: 20070707
  Serious: Yes (Hospitalization, Other)
  Sender: FDA-Public Use
  Company Number: US200606001205

PATIENT
  Age: 33 Year
  Sex: Male
  Weight: 106.6 kg

DRUGS (6)
  1. ZYPREXA [Suspect]
     Dosage: 10 MG
     Dates: start: 19990101, end: 20010801
  2. EFFEXOR [Concomitant]
  3. PAXIL [Concomitant]
  4. ATIVAN [Concomitant]
  5. TRAZODONE HCL [Concomitant]
  6. RISPERIDONE [Concomitant]

REACTIONS (4)
  - DIABETES MELLITUS NON-INSULIN-DEPENDENT [None]
  - DIABETIC KETOACIDOSIS [None]
  - HYPERGLYCAEMIC HYPEROSMOLAR NONKETOTIC SYNDROME [None]
  - PANCREATITIS [None]
